FAERS Safety Report 9693907 (Version 1)
Quarter: 2013Q4

REPORT INFORMATION
  Report Type: Spontaneous
  Country: NL (occurrence: NL)
  Receive Date: 20131118
  Receipt Date: 20131118
  Transmission Date: 20140711
  Serious: Yes (Other)
  Sender: FDA-Public Use
  Company Number: NL-PFIZER INC-2013327435

PATIENT
  Age: 55 Year
  Sex: Female

DRUGS (5)
  1. LYRICA [Suspect]
     Indication: POST HERPETIC NEURALGIA
     Dosage: 75 MG, 2X/DAY
     Dates: start: 20130830, end: 20130930
  2. THYRAX [Concomitant]
     Dosage: 0.100 MG, 1X/DAY
  3. INSULIN GLULISINE [Concomitant]
  4. INSULIN GLARGINE [Concomitant]
  5. OXAZEPAM [Concomitant]
     Dosage: UNK

REACTIONS (1)
  - Diarrhoea haemorrhagic [Recovered/Resolved]
